FAERS Safety Report 26009519 (Version 2)
Quarter: 2025Q4

REPORT INFORMATION
  Report Type: Spontaneous
  Country: TR (occurrence: TR)
  Receive Date: 20251107
  Receipt Date: 20251113
  Transmission Date: 20260119
  Serious: Yes (Hospitalization)
  Sender: ACCORD
  Company Number: TR-MLMSERVICE-20251016-PI678403-00327-1

PATIENT
  Age: 39 Year
  Sex: Male

DRUGS (7)
  1. TOPIRAMATE [Interacting]
     Active Substance: TOPIRAMATE
     Indication: Generalised tonic-clonic seizure
  2. VALPROIC ACID [Interacting]
     Active Substance: VALPROIC ACID
     Indication: Status epilepticus
     Dosage: LOADING DOSE
  3. LEVETIRACETAM [Concomitant]
     Active Substance: LEVETIRACETAM
     Indication: Generalised tonic-clonic seizure
  4. ASPIRIN [Concomitant]
     Active Substance: ASPIRIN
  5. LACOSAMIDE [Concomitant]
     Active Substance: LACOSAMIDE
     Indication: Generalised tonic-clonic seizure
  6. VALPROIC ACID [Interacting]
     Active Substance: VALPROIC ACID
     Indication: Status epilepticus
     Dosage: MAINTENANCE DOSE
     Route: 048
  7. LEVETIRACETAM [Concomitant]
     Active Substance: LEVETIRACETAM
     Indication: Partial seizures

REACTIONS (3)
  - Metabolic encephalopathy [Recovering/Resolving]
  - Holmes tremor [Recovering/Resolving]
  - Drug interaction [Unknown]
